FAERS Safety Report 5017981-8 (Version None)
Quarter: 2006Q2

REPORT INFORMATION
  Report Type: 
  Country: None (occurrence: None)
  Receive Date: 20060605
  Receipt Date: 20060529
  Transmission Date: 20061013
  Serious: Yes (Death, Other)
  Sender: FDA-Public Use
  Company Number: FR-GLAXOSMITHKLINE-B0425995A

PATIENT
  Age: 96 Year
  Sex: Female
  Weight: 49.4 kg

DRUGS (3)
  1. ARIXTRA [Suspect]
     Dosage: 7.5MG PER DAY
     Route: 058
     Dates: start: 20060101, end: 20060101
  2. ROCEPHIN [Concomitant]
     Indication: ERYSIPELAS
  3. MYCOSTER [Concomitant]
     Indication: ERYSIPELAS

REACTIONS (7)
  - ANAEMIA [None]
  - HAEMATOMA [None]
  - INTRA-ABDOMINAL HAEMORRHAGE [None]
  - MALAISE [None]
  - MUSCLE HAEMORRHAGE [None]
  - OVERDOSE [None]
  - PAIN [None]
